FAERS Safety Report 13924406 (Version 8)
Quarter: 2018Q1

REPORT INFORMATION
  Report Type: Spontaneous
  Country: US (occurrence: US)
  Receive Date: 20170831
  Receipt Date: 20180228
  Transmission Date: 20180508
  Serious: Yes (Hospitalization, Congenital Anomaly, Other)
  Sender: FDA-Public Use
  Company Number: PHEH2017US027675

PATIENT
  Sex: Female

DRUGS (1)
  1. ZOFRAN [Suspect]
     Active Substance: ONDANSETRON HYDROCHLORIDE
     Indication: FOETAL EXPOSURE DURING PREGNANCY
     Dosage: MOTHER DOSE: 1 DF, TID
     Route: 064

REACTIONS (37)
  - Respiratory distress [Unknown]
  - Mitral valve incompetence [Unknown]
  - Pyelonephritis [Unknown]
  - Injury [Unknown]
  - Otitis media [Unknown]
  - Chest pain [Unknown]
  - Inguinal hernia [Unknown]
  - Supravalvular aortic stenosis [Unknown]
  - Respiratory syncytial virus bronchiolitis [Unknown]
  - Urinary tract disorder [Unknown]
  - Oropharyngeal pain [Unknown]
  - Aortic valve atresia [Unknown]
  - Lymphangioma [Unknown]
  - Endocarditis [Unknown]
  - Urinary incontinence [Unknown]
  - Pharyngitis [Unknown]
  - Musculoskeletal discomfort [Unknown]
  - Vesicoureteric reflux [Recovered/Resolved]
  - Lymphadenopathy [Unknown]
  - Aortic valve incompetence [Unknown]
  - Respiratory syncytial virus infection [Unknown]
  - Bronchitis [Unknown]
  - Nasal congestion [Unknown]
  - Kidney infection [Unknown]
  - Foetal exposure during pregnancy [Unknown]
  - Ear pain [Unknown]
  - Pyrexia [Unknown]
  - Renal disorder [Unknown]
  - Dyspnoea [Unknown]
  - Hydrocele [Unknown]
  - Laevocardia [Unknown]
  - Pneumonia [Unknown]
  - Pulmonary valve incompetence [Unknown]
  - Left ventricular hypertrophy [Unknown]
  - Pathological fracture [Unknown]
  - Urinary tract infection [Unknown]
  - Abdominal wall cyst [Unknown]
